FAERS Safety Report 11682318 (Version 1)
Quarter: 2015Q4

REPORT INFORMATION
  Report Type: Spontaneous
  Country: US (occurrence: US)
  Receive Date: 20151029
  Receipt Date: 20151029
  Transmission Date: 20160304
  Serious: Yes (Other)
  Sender: FDA-Public Use
  Company Number: US-TEVA-603930USA

PATIENT

DRUGS (5)
  1. ACYCLOVIR. [Concomitant]
     Active Substance: ACYCLOVIR
     Indication: HERPES VIRUS INFECTION
     Dosage: 800 MILLIGRAM DAILY;
     Route: 065
     Dates: start: 201503
  2. MELOXICAM. [Suspect]
     Active Substance: MELOXICAM
     Indication: PRODUCT USED FOR UNKNOWN INDICATION
     Dosage: DOSE AND FREQUENCY NOT PROVIDED
     Route: 065
  3. CELECOXIB. [Suspect]
     Active Substance: CELECOXIB
     Indication: ARTHRITIS
     Dosage: FREQUENCY NOT PROVIDED
     Route: 065
  4. HYDROCHLOROTHIAZIDE. [Concomitant]
     Active Substance: HYDROCHLOROTHIAZIDE
     Indication: HYPERTENSION
  5. CELEBREX [Concomitant]
     Active Substance: CELECOXIB
     Indication: ARTHRITIS
     Dates: start: 201508

REACTIONS (9)
  - Joint destruction [Unknown]
  - Arthralgia [Unknown]
  - Adverse event [Not Recovered/Not Resolved]
  - Product substitution issue [Unknown]
  - Malaise [Unknown]
  - Groin pain [Unknown]
  - Pain [Not Recovered/Not Resolved]
  - Joint instability [Unknown]
  - Herpes virus infection [Unknown]

NARRATIVE: CASE EVENT DATE: 2010
